FAERS Safety Report 4314631-0 (Version None)
Quarter: 2004Q1

REPORT INFORMATION
  Report Type: 
  Country: None (occurrence: None)
  Receive Date: 20040308
  Receipt Date: 20040202
  Transmission Date: 20041129
  Serious: Yes (Other)
  Sender: FDA-Public Use
  Company Number: CIP02002112

PATIENT
  Age: 74 Year
  Sex: Female

DRUGS (5)
  1. ACTONEL [Suspect]
     Indication: OSTEOPOROSIS
     Dosage: 2.5 MG DAILY, ORAL
     Route: 048
     Dates: start: 20020816, end: 20020918
  2. SOLON (SOFALCONE) [Concomitant]
  3. DORNER (BERAPROST SODIUM) [Concomitant]
  4. OMEPRAZOLE [Concomitant]
  5. HALCION [Concomitant]

REACTIONS (6)
  - ABDOMINAL PAIN UPPER [None]
  - BACK PAIN [None]
  - GASTRIC POLYPS [None]
  - GASTRITIS [None]
  - HEPATITIS ACUTE [None]
  - NAUSEA [None]
